FAERS Safety Report 5222544-5 (Version None)
Quarter: 2007Q1

REPORT INFORMATION
  Report Type: 
  Country: None (occurrence: None)
  Receive Date: 20070124
  Receipt Date: 20070112
  Transmission Date: 20070707
  Serious: Yes (Other)
  Sender: FDA-Public Use
  Company Number: 234114

PATIENT
  Age: 12 Year
  Sex: Male

DRUGS (1)
  1. NUTROPIN [Suspect]
     Indication: BODY HEIGHT BELOW NORMAL
     Dosage: SEE IMAGE
     Route: 058
     Dates: start: 20060222

REACTIONS (2)
  - INJECTION SITE ATROPHY [None]
  - LIPODYSTROPHY ACQUIRED [None]
